FAERS Safety Report 13494883 (Version 2)
Quarter: 2017Q2

REPORT INFORMATION
  Report Type: Spontaneous
  Country: US (occurrence: US)
  Receive Date: 20170428
  Receipt Date: 20170616
  Transmission Date: 20170830
  Serious: Yes (Other)
  Sender: FDA-Public Use
  Company Number: US-AMGEN-USASP2017061476

PATIENT
  Age: 78 Year
  Sex: Female
  Weight: 61.4 kg

DRUGS (3)
  1. HECTOROL [Concomitant]
     Active Substance: DOXERCALCIFEROL
     Indication: HYPERPARATHYROIDISM SECONDARY
     Dosage: 2 MG, TIW
     Route: 042
     Dates: start: 20170314, end: 20170522
  2. PARSABIV [Suspect]
     Active Substance: ETELCALCETIDE HYDROCHLORIDE
     Indication: HYPERPARATHYROIDISM SECONDARY
     Dosage: 5 MG, UNK
     Route: 042
     Dates: start: 20170411, end: 20170414
  3. AMBIEN [Suspect]
     Active Substance: ZOLPIDEM TARTRATE
     Indication: INSOMNIA
     Dosage: UNK UNK, QHS
     Route: 065
     Dates: start: 2016, end: 201705

REACTIONS (10)
  - Paraesthesia [Recovering/Resolving]
  - Suicidal ideation [Recovered/Resolved]
  - Gastrointestinal disorder [Unknown]
  - Nausea [Recovered/Resolved]
  - Facial paralysis [Recovered/Resolved]
  - Hypotension [Unknown]
  - Depression [Recovered/Resolved]
  - Swelling face [Unknown]
  - Muscular weakness [Not Recovered/Not Resolved]
  - Pruritus [Recovering/Resolving]

NARRATIVE: CASE EVENT DATE: 20170413
